FAERS Safety Report 9852060 (Version 2)
Quarter: 2014Q1

REPORT INFORMATION
  Report Type: Spontaneous
  Country: US (occurrence: US)
  Receive Date: 20140129
  Receipt Date: 20140213
  Transmission Date: 20141002
  Serious: No
  Sender: FDA-Public Use
  Company Number: US-PFIZER INC-2014023359

PATIENT
  Age: 48 Year
  Sex: Male

DRUGS (17)
  1. CELEBREX [Suspect]
     Dosage: 200 MG, 2X/DAY
     Route: 048
  2. ACETAMINOPHEN [Concomitant]
     Dosage: 2 TABLET(S) (1,000 MG) TWICE DAILY AS NEEDED
     Route: 048
  3. FLUTICASONE [Concomitant]
     Dosage: 50MCG, 1SPRAY(S) IN EACH NOSTRIL TWICE DAILY AS NEEDED
     Route: 055
  4. IBUPROFEN [Concomitant]
     Dosage: 100 MG, AS NEEDED
  5. IBUPROFEN-DIPHENHYDRAMINE [Concomitant]
     Dosage: 200-38MG 2 TABLETS DAILY AT BEDTIME AS NEEDED
  6. INDOMETHACIN [Concomitant]
     Dosage: 50MG, 1 TID 1WEEKS, 1 BID X 1 WEEK, 1 DAILY X 1 WEEK THEN STOP
     Route: 048
  7. LANSOPRAZOLE [Concomitant]
     Dosage: 30 MG, 1X/DAY
     Route: 048
  8. LIDOCAINE [Concomitant]
     Dosage: 5%(700 MG/PATCH), 1 TO 3 PATCHES TOPICALLY AS NEEDED TO AFFECTED AREA. ON 12 HOURS, OFF 12 HOURS
     Route: 061
  9. LOSARTAN [Concomitant]
     Dosage: 25 MG, 1X/DAY
     Route: 048
  10. SAVELLA [Concomitant]
     Dosage: 25 MG, 1X/DAY
     Route: 048
  11. ALEVE [Concomitant]
     Dosage: 440 MG, AS NEEDED
  12. DITROPAN XL [Concomitant]
     Dosage: 10 MG, 1X/DAY
     Route: 048
  13. PRAVASTATIN [Concomitant]
     Dosage: 20 MG, 1X/DAY
     Route: 048
  14. PREDNISONE [Concomitant]
     Dosage: 40 MG, DAILY
     Route: 048
  15. VERAPAMIL [Concomitant]
     Dosage: 240 MG, 1X/DAY
     Route: 048
  16. ZOLPIDEM [Concomitant]
     Indication: SLEEP DISORDER
     Dosage: 10 MG, DAILY AT BEDTIME AS NEEDED
     Route: 048
  17. ZONEGRAN [Concomitant]
     Dosage: 300 MG, 1X/DAY
     Route: 048

REACTIONS (1)
  - Sleep disorder [Unknown]
